FAERS Safety Report 6805314 (Version 4)
Quarter: 2017Q3

REPORT INFORMATION
  Report Type: Spontaneous
  Country: US (occurrence: US)
  Receive Date: 20081106
  Receipt Date: 20170928
  Transmission Date: 20171128
  Serious: Yes (Hospitalization, Disabling, Other)
  Sender: FDA-Public Use
  Company Number: US-PFIZER INC-2008091603

PATIENT
  Age: 51 Year
  Sex: Male

DRUGS (4)
  1. CELEBREX [Suspect]
     Active Substance: CELECOXIB
     Indication: PAIN MANAGEMENT
     Dosage: 200 MG, 1X/DAY
     Dates: start: 20030101, end: 20070101
  2. BEXTRA [Suspect]
     Active Substance: VALDECOXIB
     Dosage: 10 MG, 1X/DAY
  3. CELEBREX [Suspect]
     Active Substance: CELECOXIB
     Dosage: 100 MG, UNK
     Dates: start: 2004, end: 2007
  4. BEXTRA [Suspect]
     Active Substance: VALDECOXIB
     Indication: PAIN MANAGEMENT
     Dosage: 10 MG, UNK
     Route: 048
     Dates: start: 20020101, end: 20050101

REACTIONS (13)
  - Ischaemic stroke [Unknown]
  - Myocardial infarction [Unknown]
  - Hypertension [Unknown]
  - Memory impairment [Unknown]
  - Impaired healing [Unknown]
  - Coagulopathy [Unknown]
  - Diarrhoea [Not Recovered/Not Resolved]
  - Bone disorder [Unknown]
  - Migraine [Unknown]
  - Vision blurred [Unknown]
  - Diabetes mellitus [Unknown]
  - Depression [Unknown]
  - Gastrointestinal disorder [Not Recovered/Not Resolved]
